FAERS Safety Report 10676746 (Version 1)
Quarter: 2014Q4

REPORT INFORMATION
  Report Type: Report from Study
  Country: US (occurrence: US)
  Receive Date: 20141226
  Receipt Date: 20141226
  Transmission Date: 20150529
  Serious: Yes (Hospitalization, Other)
  Sender: FDA-Public Use
  Company Number: US-BRISTOL-MYERS SQUIBB COMPANY-BMS-2014-002236

PATIENT
  Age: 71 Year
  Sex: Male
  Weight: 87.8 kg

DRUGS (1)
  1. IPILIMUMAB [Suspect]
     Active Substance: IPILIMUMAB
     Indication: MALIGNANT MELANOMA
     Dosage: 3 MG/KG, Q3WK
     Route: 042
     Dates: start: 20130805, end: 20130901

REACTIONS (2)
  - Pneumonia [Unknown]
  - Colitis [Unknown]

NARRATIVE: CASE EVENT DATE: 20130901
